FAERS Safety Report 19306640 (Version 1)
Quarter: 2021Q2

REPORT INFORMATION
  Report Type: Spontaneous
  Country: US (occurrence: US)
  Receive Date: 20210525
  Receipt Date: 20210525
  Transmission Date: 20210717
  Serious: No
  Sender: FDA-Public Use
  Company Number: None

PATIENT
  Age: 14 Year
  Sex: Female
  Weight: 60.7 kg

DRUGS (5)
  1. DIPHENHYDRAMINE. [Concomitant]
     Active Substance: DIPHENHYDRAMINE
     Dates: start: 20210518, end: 20210518
  2. PALONOSETRON. [Concomitant]
     Active Substance: PALONOSETRON HYDROCHLORIDE
     Dates: start: 20210518, end: 20210518
  3. VINCRISTINE [Concomitant]
     Active Substance: VINCRISTINE
     Dates: start: 20210518, end: 20210518
  4. DEXAMETHASONE. [Concomitant]
     Active Substance: DEXAMETHASONE
     Dates: start: 20210518, end: 20210518
  5. ZINECARD [Suspect]
     Active Substance: DEXRAZOXANE HYDROCHLORIDE
     Indication: CARDIOMYOPATHY
     Dosage: ?          OTHER FREQUENCY:ONCE;?
     Route: 042
     Dates: start: 20210518, end: 20210518

REACTIONS (3)
  - Infusion related reaction [None]
  - Pruritus [None]
  - Urticaria [None]

NARRATIVE: CASE EVENT DATE: 20210518
